FAERS Safety Report 18890775 (Version 1)
Quarter: 2021Q1

REPORT INFORMATION
  Report Type: Spontaneous
  Country: JP (occurrence: JP)
  Receive Date: 20210215
  Receipt Date: 20210215
  Transmission Date: 20210420
  Serious: Yes (Congenital Anomaly, Other)
  Sender: FDA-Public Use
  Company Number: JP-LEADINGPHARMA-JP-2021LEALIT00053

PATIENT
  Weight: 1.35 kg

DRUGS (2)
  1. METHYLDOPA. [Suspect]
     Active Substance: METHYLDOPA
     Indication: FOETAL EXPOSURE DURING PREGNANCY
     Route: 064
  2. NIFEDIPINE CAPSULES USP [Suspect]
     Active Substance: NIFEDIPINE
     Indication: FOETAL EXPOSURE DURING PREGNANCY
     Route: 064

REACTIONS (2)
  - Conus medullaris syndrome [Unknown]
  - Atrial septal defect [Unknown]
